FAERS Safety Report 10601872 (Version 11)
Quarter: 2016Q4

REPORT INFORMATION
  Report Type: Spontaneous
  Country: DE (occurrence: DE)
  Receive Date: 20141124
  Receipt Date: 20161110
  Transmission Date: 20170206
  Serious: Yes (Hospitalization, Other)
  Sender: FDA-Public Use
  Company Number: DE-SA-2014SA152368

PATIENT
  Age: 26 Year
  Sex: Male
  Weight: 67 kg

DRUGS (13)
  1. LEMTRADA [Suspect]
     Active Substance: ALEMTUZUMAB
     Indication: RELAPSING-REMITTING MULTIPLE SCLEROSIS
     Route: 041
     Dates: start: 20131202, end: 20131206
  2. IBU [Concomitant]
     Active Substance: IBUPROFEN
     Indication: PAIN
  3. CARBIMAZOLE [Suspect]
     Active Substance: CARBIMAZOLE
     Indication: HYPERTHYROIDISM
     Dosage: DOSE: 2X1
     Route: 048
     Dates: start: 20141101, end: 20141102
  4. CARBIMAZOLE [Suspect]
     Active Substance: CARBIMAZOLE
     Indication: HYPERTHYROIDISM
     Dosage: DOSE: 1X1
     Route: 048
     Dates: start: 20141103
  5. PROPRANOLOL [Concomitant]
     Active Substance: PROPRANOLOL\PROPRANOLOL HYDROCHLORIDE
     Indication: TREMOR
     Route: 048
  6. OMEPRAZOLE. [Concomitant]
     Active Substance: OMEPRAZOLE
     Indication: PROPHYLAXIS
     Dosage: DOSE: 1X1?DOSE: 1 DF/QD
     Route: 048
  7. PREDNISOLONE. [Concomitant]
     Active Substance: PREDNISOLONE
  8. CARBIMAZOLE [Suspect]
     Active Substance: CARBIMAZOLE
     Indication: HYPERTHYROIDISM
     Dosage: DOSE: 4X1
     Route: 048
     Dates: start: 20141030, end: 20141031
  9. L-THYROXIN [Concomitant]
     Active Substance: LEVOTHYROXINE SODIUM
     Indication: HYPOTHYROIDISM
  10. DEXAMETHASONE. [Concomitant]
     Active Substance: DEXAMETHASONE
  11. ROCALTROL [Concomitant]
     Active Substance: CALCITRIOL
     Indication: HYPOTHYROIDISM
     Route: 048
  12. CALCIUM CARBONATE. [Concomitant]
     Active Substance: CALCIUM CARBONATE
     Indication: HYPOTHYROIDISM
     Route: 048
  13. OMEPRAZOLE. [Concomitant]
     Active Substance: OMEPRAZOLE
     Indication: PROPHYLAXIS
     Dosage: DOSE: 1X1?DOSE: 1 DF/QD
     Route: 048

REACTIONS (29)
  - Chromaturia [Recovered/Resolved]
  - Weight decreased [Not Recovered/Not Resolved]
  - Frequent bowel movements [Unknown]
  - Hyperthyroidism [Not Recovered/Not Resolved]
  - Basedow^s disease [Recovered/Resolved with Sequelae]
  - Blood thyroid stimulating hormone decreased [Unknown]
  - Contusion [Recovered/Resolved]
  - Tremor [Unknown]
  - Muscular weakness [Unknown]
  - Temperature intolerance [Unknown]
  - Nodule [Unknown]
  - Anti-thyroid antibody positive [Unknown]
  - Fatigue [Unknown]
  - Tri-iodothyronine increased [Unknown]
  - Thyroxine free increased [Unknown]
  - Haemolytic anaemia [Unknown]
  - Mouth haemorrhage [Recovered/Resolved]
  - Haemorrhage [Recovered/Resolved]
  - Fatigue [Not Recovered/Not Resolved]
  - Dyspnoea [Unknown]
  - Tachycardia [Unknown]
  - Thyroid hormones increased [Unknown]
  - Neutropenia [Unknown]
  - Petechiae [Recovered/Resolved]
  - Mood swings [Unknown]
  - Hyperhidrosis [Unknown]
  - Mucosal haemorrhage [Recovered/Resolved]
  - Haemarthrosis [Recovered/Resolved]
  - Immune thrombocytopenic purpura [Recovered/Resolved]

NARRATIVE: CASE EVENT DATE: 2014
